FAERS Safety Report 5377299-0 (Version None)
Quarter: 2007Q3

REPORT INFORMATION
  Report Type: 
  Country: None (occurrence: None)
  Receive Date: 20070703
  Receipt Date: 20070625
  Transmission Date: 20080115
  Serious: Yes (Other)
  Sender: FDA-Public Use
  Company Number: JP-ASTRAZENECA-2007AP03109

PATIENT
  Age: 59 Year
  Sex: Female

DRUGS (2)
  1. CRESTOR [Suspect]
     Indication: HYPERCHOLESTEROLAEMIA
     Route: 048
     Dates: start: 20070508, end: 20070524
  2. VASOLAN [Suspect]
     Route: 048
     Dates: start: 20070508, end: 20070524

REACTIONS (1)
  - OCULOMUCOCUTANEOUS SYNDROME [None]
